FAERS Safety Report 12335360 (Version 3)
Quarter: 2016Q4

REPORT INFORMATION
  Report Type: Spontaneous
  Country: FR (occurrence: FR)
  Receive Date: 20160504
  Receipt Date: 20161206
  Transmission Date: 20170207
  Serious: Yes (Hospitalization, Other)
  Sender: FDA-Public Use
  Company Number: FR-009507513-1605FRA001311

PATIENT
  Age: 66 Year
  Sex: Female
  Weight: 86 kg

DRUGS (6)
  1. OXYCONTIN [Concomitant]
     Active Substance: OXYCODONE HYDROCHLORIDE
     Indication: PAIN
     Dosage: 100 MG, BID
     Route: 048
  2. ALPRAZOLAM. [Concomitant]
     Active Substance: ALPRAZOLAM
     Indication: ANXIETY
     Dosage: 0.5 MG, QD
     Route: 048
  3. ESOMEPRAZOLE [Concomitant]
     Active Substance: ESOMEPRAZOLE
     Indication: GASTROOESOPHAGEAL REFLUX DISEASE
     Dosage: 20 MG, QD
     Route: 048
  4. KEYTRUDA [Suspect]
     Active Substance: PEMBROLIZUMAB
     Indication: MALIGNANT MELANOMA
     Dosage: UNK
     Route: 042
     Dates: start: 20151012
  5. CEFIXIME. [Suspect]
     Active Substance: CEFIXIME
     Indication: LUNG DISORDER
     Dosage: UNK
     Route: 048
     Dates: start: 20160322, end: 20160408
  6. KEYTRUDA [Suspect]
     Active Substance: PEMBROLIZUMAB
     Dosage: 2 MG/KG, Q3W
     Route: 042
     Dates: start: 20150127, end: 20160321

REACTIONS (3)
  - Tubulointerstitial nephritis [Unknown]
  - Blood creatinine increased [Unknown]
  - Blood urea increased [Recovered/Resolved]

NARRATIVE: CASE EVENT DATE: 201601
